FAERS Safety Report 21615920 (Version 1)
Quarter: 2022Q4

REPORT INFORMATION
  Report Type: Spontaneous
  Country: FR (occurrence: FR)
  Receive Date: 20221118
  Receipt Date: 20221118
  Transmission Date: 20230112
  Serious: Yes (Other)
  Sender: FDA-Public Use
  Company Number: FR-002147023-NVSC2022FR258235

PATIENT

DRUGS (1)
  1. CYCLOSPORINE [Suspect]
     Active Substance: CYCLOSPORINE
     Indication: Immune thrombocytopenia
     Dosage: 100 TO 150 MG/L
     Route: 065

REACTIONS (3)
  - Acute kidney injury [Recovered/Resolved]
  - Hypertension [Recovered/Resolved]
  - Product use in unapproved indication [Unknown]
